FAERS Safety Report 7828216-2 (Version None)
Quarter: 2011Q4

REPORT INFORMATION
  Report Type: 
  Country: None (occurrence: None)
  Receive Date: 20111020
  Receipt Date: 20111012
  Transmission Date: 20120403
  Serious: Yes (Death)
  Sender: FDA-Public Use
  Company Number: GR-ABBOTT-11P-066-0838070-00

PATIENT
  Age: 50 Year
  Sex: Female

DRUGS (3)
  1. VALPROATE SODIUM [Suspect]
     Indication: BIPOLAR DISORDER
  2. LORAZEPAM [Suspect]
     Indication: BIPOLAR DISORDER
  3. HALOPERIDOL [Suspect]
     Indication: BIPOLAR DISORDER

REACTIONS (1)
  - ACUTE MYOCARDIAL INFARCTION [None]
